FAERS Safety Report 7641131-2 (Version None)
Quarter: 2011Q3

REPORT INFORMATION
  Report Type: 
  Country: None (occurrence: None)
  Receive Date: 20110728
  Receipt Date: 20110718
  Transmission Date: 20111222
  Serious: Yes (Hospitalization, Other)
  Sender: FDA-Public Use
  Company Number: CA-ELI_LILLY_AND_COMPANY-CA201107004716

PATIENT
  Sex: Male
  Weight: 95 kg

DRUGS (22)
  1. ZYPREXA [Suspect]
     Dosage: 7.5 MG, EACH EVENING
  2. HYDROXYZINE HCL [Concomitant]
  3. LITHIUM CARBONATE [Concomitant]
  4. ATIVAN [Concomitant]
  5. TYLENOL WITH CODEIN #3 [Concomitant]
  6. ZYPREXA ZYDIS [Suspect]
     Indication: SCHIZOPHRENIA, PARANOID TYPE
     Dosage: 15 MG, EACH EVENING
  7. CHLORPROMAZINE [Concomitant]
  8. ASPIRIN [Concomitant]
  9. IMOVANE [Concomitant]
  10. ZYPREXA [Suspect]
     Dosage: 2.5 MG, EACH EVENING
  11. ZYPREXA [Suspect]
     Dosage: 3.75 MG, EACH EVENING
  12. RISPERDAL [Concomitant]
  13. VIOXX [Concomitant]
  14. ZYPREXA [Suspect]
     Indication: SCHIZOPHRENIA, PARANOID TYPE
     Dosage: 5 MG, EACH EVENING
  15. WELLBUTRIN [Concomitant]
  16. ELAVIL [Concomitant]
  17. HALOPERIDOL [Concomitant]
  18. ZYPREXA [Suspect]
     Dosage: 10 MG, EACH EVENING
  19. ZYPREXA ZYDIS [Suspect]
     Dosage: 10 MG, EACH EVENING
  20. TOFRANIL [Concomitant]
  21. DALMANE [Concomitant]
  22. ZYPREXA [Suspect]
     Dosage: 2.5 MG, EACH EVENING

REACTIONS (8)
  - ORTHOSTATIC HYPOTENSION [None]
  - WEIGHT INCREASED [None]
  - PNEUMONIA MYCOPLASMAL [None]
  - BLOOD CHOLESTEROL INCREASED [None]
  - DIABETES MELLITUS [None]
  - HAEMOLYTIC ANAEMIA [None]
  - BLOOD TRIGLYCERIDES INCREASED [None]
  - WHITE BLOOD CELL COUNT INCREASED [None]
